FAERS Safety Report 25239332 (Version 1)
Quarter: 2025Q2

REPORT INFORMATION
  Report Type: Spontaneous
  Country: CN (occurrence: CN)
  Receive Date: 20250425
  Receipt Date: 20250425
  Transmission Date: 20250717
  Serious: Yes (Other)
  Sender: FRESENIUS KABI
  Company Number: CN-FreseniusKabi-FK202505900

PATIENT
  Age: 69 Year
  Sex: Female
  Weight: 53 kg

DRUGS (4)
  1. OMEGAVEN [Suspect]
     Active Substance: FISH OIL
     Indication: Nutritional supplementation
     Dosage: THERAPY START TIME: 11:35?FOA-INJECTION?INFUSION RATE WAS CONTROLLED AT 150ML/H
     Route: 041
     Dates: start: 20240811, end: 20240811
  2. ELECTROLYTES NOS\MINERALS [Suspect]
     Active Substance: ELECTROLYTES NOS\MINERALS
     Indication: Nutritional supplementation
     Dosage: FOA-INJECTION
     Route: 041
     Dates: start: 20240811, end: 20240811
  3. AMINO ACIDS\DEXTROSE\ELECTROLYTES NOS\SOYBEAN OIL [Suspect]
     Active Substance: AMINO ACIDS\DEXTROSE\ELECTROLYTES NOS\SOYBEAN OIL
     Indication: Nutritional supplementation
     Dosage: FOA-INJECTION
     Route: 041
     Dates: start: 20240811, end: 20240811
  4. POTASSIUM ASPARTATE [Suspect]
     Active Substance: POTASSIUM ASPARTATE
     Indication: Nutritional supplementation
     Route: 041
     Dates: start: 20240811, end: 20240811

REACTIONS (1)
  - Anaphylactoid reaction [Recovering/Resolving]

NARRATIVE: CASE EVENT DATE: 20240811
